FAERS Safety Report 5361648-3 (Version None)
Quarter: 2007Q2

REPORT INFORMATION
  Report Type: 
  Country: None (occurrence: None)
  Receive Date: 20070619
  Receipt Date: 20070607
  Transmission Date: 20071010
  Serious: Yes (Hospitalization)
  Sender: FDA-Public Use
  Company Number: DE-BAYER-200710290BVD

PATIENT
  Age: 70 Year
  Sex: Male
  Weight: 85 kg

DRUGS (37)
  1. SORAFENIB [Suspect]
     Indication: RENAL CELL CARCINOMA STAGE UNSPECIFIED
     Route: 065
     Dates: start: 20061124, end: 20061221
  2. LEVOTHYROXINE SODIUM [Concomitant]
     Route: 065
     Dates: start: 20061206
  3. LEVOTHYROXINE SODIUM [Concomitant]
     Route: 065
     Dates: start: 20000101, end: 20061205
  4. SEVREDOL [Concomitant]
     Route: 065
     Dates: start: 20060515, end: 20061006
  5. NOVALGIN [Concomitant]
     Route: 048
     Dates: start: 20050927, end: 20060427
  6. NOVALGIN [Concomitant]
     Route: 048
     Dates: start: 20060615
  7. DURAGESIC-100 [Concomitant]
     Route: 065
     Dates: start: 20060615, end: 20061006
  8. DURAGESIC-100 [Concomitant]
     Route: 065
     Dates: start: 20061006, end: 20061205
  9. DURAGESIC-100 [Concomitant]
     Route: 065
     Dates: start: 20050101, end: 20060427
  10. DURAGESIC-100 [Concomitant]
     Route: 065
     Dates: start: 20061206
  11. BACLOFEN [Concomitant]
     Route: 065
     Dates: start: 20060615, end: 20061006
  12. BACLOFEN [Concomitant]
     Route: 065
     Dates: start: 20061206
  13. BACLOFEN [Concomitant]
     Route: 065
     Dates: start: 20061006, end: 20061205
  14. GABAPENTIN [Concomitant]
     Route: 065
     Dates: start: 20060615, end: 20061006
  15. GABAPENTIN [Concomitant]
     Route: 065
     Dates: start: 20061006
  16. JELLISOFT [Concomitant]
     Route: 065
     Dates: start: 20060902, end: 20061207
  17. JELLISOFT [Concomitant]
     Route: 065
     Dates: start: 20061222
  18. METHIONIN [Concomitant]
     Route: 065
     Dates: start: 20061006, end: 20061205
  19. METHIONIN [Concomitant]
     Route: 065
     Dates: start: 20061206
  20. FUROBETA [Concomitant]
     Route: 065
     Dates: start: 20061006
  21. FOLIC ACID [Concomitant]
     Route: 065
     Dates: start: 20061006
  22. EUTHYROXIN [Concomitant]
     Route: 065
     Dates: start: 20061206
  23. ZOMETA [Concomitant]
     Route: 065
     Dates: start: 20051005
  24. PREDNISOLONE [Concomitant]
     Route: 065
     Dates: start: 20060731, end: 20060805
  25. PREDNISOLONE [Concomitant]
     Route: 065
     Dates: start: 20060303, end: 20060310
  26. PREDNISOLONE [Concomitant]
     Route: 065
     Dates: start: 20060113, end: 20060302
  27. PREDNISOLONE [Concomitant]
     Route: 065
     Dates: start: 20060806, end: 20060813
  28. PREDNISOLONE [Concomitant]
     Route: 065
     Dates: start: 20060311, end: 20060317
  29. PREDNISOLONE [Concomitant]
     Route: 065
     Dates: start: 20060404, end: 20060514
  30. PREDNISOLONE [Concomitant]
     Route: 065
     Dates: start: 20060726, end: 20060730
  31. PREDNISOLONE [Concomitant]
     Route: 065
     Dates: start: 20060515, end: 20061006
  32. PREDNISOLONE [Concomitant]
     Route: 065
     Dates: start: 20060318, end: 20060403
  33. AMITRIPTYLINE HCL [Concomitant]
     Route: 065
     Dates: start: 20060615, end: 20061006
  34. DIAZEPAM [Concomitant]
     Route: 065
     Dates: start: 20060113, end: 20060410
  35. DIAZEPAM [Concomitant]
     Route: 065
     Dates: start: 20060411, end: 20060414
  36. RANITIDINE HCL [Concomitant]
     Route: 065
     Dates: start: 20060615
  37. FUROBETA [Concomitant]
     Route: 065
     Dates: start: 20061006

REACTIONS (1)
  - IMPAIRED HEALING [None]
